FAERS Safety Report 9911400 (Version 3)
Quarter: 2014Q2

REPORT INFORMATION
  Report Type: Report from Study
  Country: JP (occurrence: JP)
  Receive Date: 20140219
  Receipt Date: 20140416
  Transmission Date: 20141212
  Serious: Yes (Death, Hospitalization, Other)
  Sender: FDA-Public Use
  Company Number: JP-GILEAD-2014-0094825

PATIENT
  Age: 52 Year
  Sex: Female
  Weight: 42 kg

DRUGS (9)
  1. AMBRISENTAN [Suspect]
     Indication: PULMONARY ARTERIAL HYPERTENSION
     Dosage: 2.5 MG, QD
     Route: 065
     Dates: end: 20140204
  2. REVATIO [Concomitant]
     Indication: PULMONARY ARTERIAL HYPERTENSION
     Route: 048
     Dates: end: 20140204
  3. FUROSEMIDE [Concomitant]
     Indication: PULMONARY ARTERIAL HYPERTENSION
     Route: 048
     Dates: end: 20140204
  4. BEPRICOR [Concomitant]
     Indication: VENTRICULAR EXTRASYSTOLES
     Route: 048
     Dates: end: 20140204
  5. HERBESSER R [Concomitant]
     Indication: PRINZMETAL ANGINA
     Route: 048
     Dates: start: 20130129, end: 20140204
  6. FERROMIA [Concomitant]
     Indication: IRON DEFICIENCY ANAEMIA
     Route: 048
     Dates: start: 20130409, end: 20130701
  7. FEBURIC [Concomitant]
     Indication: HYPERURICAEMIA
     Route: 048
     Dates: start: 20130305, end: 20140204
  8. NEXIUM                             /01479302/ [Concomitant]
     Indication: HYPERCHLORHYDRIA
     Route: 048
     Dates: start: 20131022, end: 20140204
  9. CELECOX [Concomitant]
     Indication: SCOLIOSIS
     Route: 048
     Dates: start: 20140107, end: 20140121

REACTIONS (5)
  - Pulmonary hypertensive crisis [Unknown]
  - Depressed level of consciousness [Unknown]
  - Cerebral infarction [Fatal]
  - Multi-organ failure [Fatal]
  - Respiratory arrest [Fatal]
